FAERS Safety Report 9109344 (Version 1)
Quarter: 2013Q1

REPORT INFORMATION
  Report Type: Spontaneous
  Country: AU (occurrence: AU)
  Receive Date: 20130222
  Receipt Date: 20130222
  Transmission Date: 20140127
  Serious: Yes (Death, Hospitalization)
  Sender: FDA-Public Use
  Company Number: AU-SANOFI-AVENTIS-2013SA016600

PATIENT
  Age: 74 Year
  Sex: Male

DRUGS (3)
  1. FLUOROURACIL [Suspect]
     Indication: COLON CANCER METASTATIC
     Dosage: 6 CYCLES
     Route: 065
     Dates: start: 200810, end: 200812
  2. OXALIPLATIN [Suspect]
     Indication: COLON CANCER METASTATIC
     Dosage: 6 CYCLES
     Route: 065
     Dates: start: 200810, end: 200812
  3. LEUCOVORIN [Suspect]
     Indication: COLON CANCER METASTATIC
     Dosage: 6 CYCLES
     Route: 065
     Dates: start: 200810, end: 200812

REACTIONS (5)
  - Interstitial lung disease [Fatal]
  - C-reactive protein increased [Fatal]
  - Haemoptysis [Fatal]
  - Dyspnoea [Fatal]
  - Respiratory failure [Fatal]
